FAERS Safety Report 5115408-9 (Version None)
Quarter: 2006Q3

REPORT INFORMATION
  Report Type: 
  Country: None (occurrence: None)
  Receive Date: 20060922
  Receipt Date: 20060909
  Transmission Date: 20061208
  Serious: Yes (Hospitalization)
  Sender: FDA-Public Use
  Company Number: 2006110490

PATIENT
  Age: 21 Year
  Sex: Female
  Weight: 58.9676 kg

DRUGS (3)
  1. CETIRIZINE HCL [Suspect]
     Indication: URTICARIA
     Dosage: ONE DOSE FORM (1 IN 1 D)
     Dates: start: 20060901
  2. BENADRYL [Suspect]
     Indication: HYPERSENSITIVITY
     Dosage: (20 CC, EVERY 4 TO 6  OURS)
     Dates: start: 20060901
  3. ANTIBIOTICS (ANTIBIOTICS) [Concomitant]

REACTIONS (1)
  - URTICARIA [None]
